FAERS Safety Report 23332102 (Version 2)
Quarter: 2023Q4

REPORT INFORMATION
  Report Type: Spontaneous
  Country: CN (occurrence: CN)
  Receive Date: 20231222
  Receipt Date: 20231229
  Transmission Date: 20240110
  Serious: Yes (Other)
  Sender: FDA-Public Use
  Company Number: CN-002147023-NVSC2023CN263765

PATIENT
  Age: 26 Year
  Sex: Female
  Weight: 60 kg

DRUGS (7)
  1. AZOPT [Suspect]
     Active Substance: BRINZOLAMIDE
     Indication: Glaucoma
     Dosage: 0.05 ML, TID
     Route: 047
     Dates: start: 20230720, end: 20231128
  2. PREDNISOLONE ACETATE [Suspect]
     Active Substance: PREDNISOLONE ACETATE
     Indication: Uveitis
     Dosage: 0.05 ML (6 TIMES PER DAY)
     Route: 047
     Dates: start: 20230417, end: 20230720
  3. PRANOPROFEN [Suspect]
     Active Substance: PRANOPROFEN
     Indication: Uveitis
     Dosage: 0.05 ML, QID
     Route: 047
     Dates: start: 20230417, end: 20230720
  4. PRANOPROFEN [Suspect]
     Active Substance: PRANOPROFEN
     Dosage: 0.05 ML, QID
     Route: 047
     Dates: start: 20230417, end: 20230720
  5. ATROPINE SULFATE [Concomitant]
     Active Substance: ATROPINE SULFATE
     Indication: Product used for unknown indication
     Dosage: 1 DRP, TID (1 DROP/TIME, DRIPPING BOTH EYES, 3 TIMES/DAY)
     Route: 065
  6. CARTEOLOL HYDROCHLORIDE [Concomitant]
     Active Substance: CARTEOLOL HYDROCHLORIDE
     Indication: Glaucoma
     Dosage: 0.05 ML, BID
     Route: 047
     Dates: start: 20230720, end: 20231128
  7. CARTEOLOL HYDROCHLORIDE [Concomitant]
     Active Substance: CARTEOLOL HYDROCHLORIDE
     Dosage: 0.05 ML, BID
     Route: 047
     Dates: start: 20230720, end: 20231128

REACTIONS (3)
  - Corneal exfoliation [Unknown]
  - Ocular hyperaemia [Unknown]
  - Lacrimation increased [Unknown]

NARRATIVE: CASE EVENT DATE: 20231128
